FAERS Safety Report 4477073-3 (Version None)
Quarter: 2004Q4

REPORT INFORMATION
  Report Type: 
  Country: None (occurrence: None)
  Receive Date: 20041013
  Receipt Date: 20040928
  Transmission Date: 20050328
  Serious: Yes (Death)
  Sender: FDA-Public Use
  Company Number: WAES 0409USA02658

PATIENT
  Age: 74 Year
  Sex: Male

DRUGS (4)
  1. COZAAR [Suspect]
     Indication: HYPERTENSION
     Dosage: 50 MG/DAILY
     Route: 048
     Dates: start: 20001107, end: 20040629
  2. WARFARIN POTASSIUM [Suspect]
     Dosage: 4.25 MG/DAILY
     Route: 048
     Dates: start: 20040419, end: 20040617
  3. CONIEL [Concomitant]
  4. PILSICAINIDE [Concomitant]

REACTIONS (2)
  - ATRIAL FIBRILLATION [None]
  - CEREBRAL HAEMORRHAGE [None]
